FAERS Safety Report 23225917 (Version 2)
Quarter: 2023Q4

REPORT INFORMATION
  Report Type: Spontaneous
  Country: US (occurrence: US)
  Receive Date: 20231124
  Receipt Date: 20231228
  Transmission Date: 20240110
  Serious: Yes (Hospitalization, Other)
  Sender: FDA-Public Use
  Company Number: US-BEH-2023165619

PATIENT
  Sex: Female
  Weight: 86.168 kg

DRUGS (33)
  1. HIZENTRA [Suspect]
     Active Substance: HUMAN IMMUNOGLOBULIN G
     Indication: Humoral immune defect
     Dosage: 12 GRAM, QW
     Route: 058
  2. HIZENTRA [Suspect]
     Active Substance: HUMAN IMMUNOGLOBULIN G
     Dosage: 13 GRAM, QW
     Route: 065
  3. DEXAMETHASONE [Concomitant]
     Active Substance: DEXAMETHASONE
  4. AUGMENTIN [Concomitant]
     Active Substance: AMOXICILLIN\CLAVULANATE POTASSIUM
  5. PREDNISONE [Concomitant]
     Active Substance: PREDNISONE
  6. BETAMETHASONE DIPROPIONATE\CLOTRIMAZOLE [Concomitant]
     Active Substance: BETAMETHASONE DIPROPIONATE\CLOTRIMAZOLE
  7. NYSTATIN AND TRIAMCINOLONE [Concomitant]
     Active Substance: NYSTATIN\TRIAMCINOLONE ACETONIDE
  8. OMEPRAZOLE [Concomitant]
     Active Substance: OMEPRAZOLE
  9. DOXYCYCLINE [Concomitant]
     Active Substance: DOXYCYCLINE
  10. MUCINEX [Concomitant]
     Active Substance: GUAIFENESIN
  11. TYLENOL WITH CODEINE [Concomitant]
     Active Substance: ACETAMINOPHEN\CODEINE PHOSPHATE
  12. AZITHROMYCIN [Concomitant]
     Active Substance: AZITHROMYCIN
  13. BUDESONIDE [Concomitant]
     Active Substance: BUDESONIDE
  14. IPRATROPIUM [Concomitant]
     Active Substance: IPRATROPIUM
  15. LOSARTAN POTASSIUM [Concomitant]
     Active Substance: LOSARTAN POTASSIUM
  16. GABAPENTIN [Concomitant]
     Active Substance: GABAPENTIN
  17. IBUPROFEN [Concomitant]
     Active Substance: IBUPROFEN
  18. KEPPRA [Concomitant]
     Active Substance: LEVETIRACETAM
  19. OMEPRAZOLE MAGNESIUM [Concomitant]
     Active Substance: OMEPRAZOLE MAGNESIUM
  20. SERTRALINE HYDROCHLORIDE [Concomitant]
     Active Substance: SERTRALINE HYDROCHLORIDE
  21. SPIRIVA [Concomitant]
     Active Substance: TIOTROPIUM BROMIDE MONOHYDRATE
  22. TYLENOL [Concomitant]
     Active Substance: ACETAMINOPHEN
  23. EPINEPHRINE [Concomitant]
     Active Substance: EPINEPHRINE
  24. LORAZEPAM [Concomitant]
     Active Substance: LORAZEPAM
  25. FORMOTEROL FUMARATE [Concomitant]
     Active Substance: FORMOTEROL FUMARATE
  26. AMLODIPINE BESYLATE [Concomitant]
     Active Substance: AMLODIPINE BESYLATE
  27. FLUTICASONE PROPIONATE [Concomitant]
     Active Substance: FLUTICASONE PROPIONATE
  28. ALBUTEROL SULFATE\IPRATROPIUM BROMIDE [Concomitant]
     Active Substance: ALBUTEROL SULFATE\IPRATROPIUM BROMIDE
  29. DALIRESP [Concomitant]
     Active Substance: ROFLUMILAST
  30. METHENAMINE HIPPURATE [Concomitant]
     Active Substance: METHENAMINE HIPPURATE
  31. SUCRALFATE [Concomitant]
     Active Substance: SUCRALFATE
  32. ZONISAMIDE [Concomitant]
     Active Substance: ZONISAMIDE
  33. ATORVASTATIN CALCIUM [Concomitant]
     Active Substance: ATORVASTATIN CALCIUM

REACTIONS (13)
  - Drug ineffective [Not Recovered/Not Resolved]
  - Sinusitis [Not Recovered/Not Resolved]
  - No adverse event [Not Recovered/Not Resolved]
  - Therapy change [Not Recovered/Not Resolved]
  - Pneumonia [Unknown]
  - Dyspnoea [Unknown]
  - Pneumonia [Unknown]
  - Chronic obstructive pulmonary disease [Unknown]
  - Paranasal sinus discomfort [Not Recovered/Not Resolved]
  - Headache [Not Recovered/Not Resolved]
  - Nasal congestion [Not Recovered/Not Resolved]
  - Temporomandibular joint syndrome [Unknown]
  - Middle ear effusion [Unknown]

NARRATIVE: CASE EVENT DATE: 20230101
